FAERS Safety Report 13924629 (Version 12)
Quarter: 2020Q3

REPORT INFORMATION
  Report Type: Report from Study
  Country: KR (occurrence: KR)
  Receive Date: 20170831
  Receipt Date: 20180831
  Transmission Date: 20201104
  Serious: Yes (Other)
  Sender: FDA-Public Use
  Company Number: KR-JNJFOC-20170824292

PATIENT
  Age: 79 Year
  Sex: Male

DRUGS (275)
  1. TMC207 [Suspect]
     Active Substance: BEDAQUILINE
     Indication: TUBERCULOSIS
     Route: 048
     Dates: start: 20170703, end: 20170717
  2. CLOFAZIMINE [Suspect]
     Active Substance: CLOFAZIMINE
     Indication: TUBERCULOSIS
     Route: 048
     Dates: start: 20170703, end: 20170717
  3. CLOFAZIMINE [Suspect]
     Active Substance: CLOFAZIMINE
     Indication: TUBERCULOSIS
     Route: 048
     Dates: start: 20170808
  4. IMIPENEM [Suspect]
     Active Substance: IMIPENEM
     Indication: TUBERCULOSIS
     Route: 042
     Dates: start: 20171228, end: 20171228
  5. IMIPENEM [Suspect]
     Active Substance: IMIPENEM
     Indication: TUBERCULOSIS
     Route: 042
     Dates: start: 20180103, end: 20180106
  6. PYRIDOXINE SINIL [Concomitant]
     Indication: VITAMIN SUPPLEMENTATION
     Route: 048
     Dates: start: 20170704, end: 20170717
  7. ISOTONIC [Concomitant]
     Indication: ELECTROLYTE SUBSTITUTION THERAPY
     Route: 042
     Dates: start: 20170718, end: 20170719
  8. ISOTONIC [Concomitant]
     Indication: ELECTROLYTE SUBSTITUTION THERAPY
     Route: 042
     Dates: start: 20170727, end: 20170727
  9. ISOTONIC [Concomitant]
     Indication: ABDOMINAL PAIN UPPER
     Route: 042
     Dates: start: 20170727, end: 20170727
  10. ISOTONIC [Concomitant]
     Indication: ABDOMINAL PAIN
     Route: 042
     Dates: start: 20170730, end: 20170730
  11. ISOTONIC [Concomitant]
     Indication: ABDOMINAL PAIN UPPER
     Route: 042
     Dates: start: 20170730, end: 20170730
  12. ISOTONIC [Concomitant]
     Indication: ABDOMINAL PAIN
     Route: 042
     Dates: start: 20170814, end: 20170815
  13. SMECTA [Concomitant]
     Active Substance: MONTMORILLONITE
     Indication: DIARRHOEA
     Route: 048
     Dates: start: 20170827, end: 20170830
  14. SMECTA [Concomitant]
     Active Substance: MONTMORILLONITE
     Indication: DIARRHOEA
     Route: 048
     Dates: start: 20171028, end: 20171028
  15. LOPMIN [Concomitant]
     Indication: ANTIDIARRHOEAL SUPPORTIVE CARE
     Route: 048
     Dates: start: 20171017, end: 20171017
  16. K?CONTIN [Concomitant]
     Indication: HYPOKALAEMIA
     Route: 048
     Dates: start: 20170710, end: 20170711
  17. POTASSIUM CHLORIDE. [Concomitant]
     Active Substance: POTASSIUM CHLORIDE
     Indication: ELECTROLYTE SUBSTITUTION THERAPY
     Route: 042
     Dates: start: 20170717, end: 20170717
  18. DEXTROSE. [Concomitant]
     Active Substance: DEXTROSE
     Indication: HYPOKALAEMIA
     Dosage: 10%
     Route: 042
     Dates: start: 20170717, end: 20170717
  19. FAMOTIDINE. [Concomitant]
     Active Substance: FAMOTIDINE
     Indication: ABDOMINAL PAIN UPPER
     Route: 048
     Dates: start: 20170808, end: 20170810
  20. FAMOTIDINE. [Concomitant]
     Active Substance: FAMOTIDINE
     Indication: ABDOMINAL PAIN UPPER
     Route: 048
     Dates: start: 20171214, end: 20171214
  21. GODEX [Concomitant]
     Indication: LIVER DISORDER
     Route: 048
     Dates: start: 20170828, end: 20170905
  22. ALLELOCK [Concomitant]
     Active Substance: OLOPATADINE HYDROCHLORIDE
     Indication: RHINORRHOEA
     Route: 048
     Dates: start: 20171116, end: 20171117
  23. TIOTROPIUM BROMIDE [Concomitant]
     Active Substance: TIOTROPIUM BROMIDE
     Indication: CHRONIC OBSTRUCTIVE PULMONARY DISEASE
     Route: 055
     Dates: start: 2014
  24. SODIUM CHLORIDE. [Concomitant]
     Active Substance: SODIUM CHLORIDE
     Indication: COMPUTERISED TOMOGRAM
     Route: 042
     Dates: start: 20170717, end: 20170717
  25. SODIUM CHLORIDE. [Concomitant]
     Active Substance: SODIUM CHLORIDE
     Indication: FLUID REPLACEMENT
     Route: 042
     Dates: start: 20170717, end: 20170717
  26. SODIUM CHLORIDE. [Concomitant]
     Active Substance: SODIUM CHLORIDE
     Indication: FLUID REPLACEMENT
     Route: 042
     Dates: start: 20170718, end: 20170718
  27. SODIUM CHLORIDE. [Concomitant]
     Active Substance: SODIUM CHLORIDE
     Indication: COMPUTERISED TOMOGRAM
     Route: 042
     Dates: start: 20170718, end: 20170718
  28. SODIUM CHLORIDE. [Concomitant]
     Active Substance: SODIUM CHLORIDE
     Indication: FLUID REPLACEMENT
     Route: 042
     Dates: start: 20171204, end: 20171205
  29. SMOODIPIN [Concomitant]
     Indication: DELIRIUM
     Route: 048
     Dates: start: 20170715, end: 20170715
  30. METOCLOPRAMIDE HYDROCHLORIDE. [Concomitant]
     Active Substance: METOCLOPRAMIDE HYDROCHLORIDE
     Indication: ABDOMINAL PAIN UPPER
     Route: 042
     Dates: start: 20180422, end: 20180423
  31. TRAST [Concomitant]
     Indication: FLANK PAIN
     Route: 050
     Dates: start: 20170930, end: 20171005
  32. MEDILAC DS [Concomitant]
     Indication: DIARRHOEA
     Route: 048
     Dates: start: 20171029, end: 20171222
  33. TRANSAMIN [Concomitant]
     Active Substance: TRANEXAMIC ACID
     Indication: HAEMOPTYSIS
     Route: 048
     Dates: start: 20171127, end: 20171127
  34. GASMOTIN [Concomitant]
     Active Substance: MOSAPRIDE CITRATE
     Indication: ABDOMINAL PAIN UPPER
     Route: 048
     Dates: start: 20180323, end: 20180323
  35. GASMOTIN [Concomitant]
     Active Substance: MOSAPRIDE CITRATE
     Indication: ABDOMINAL PAIN UPPER
     Route: 048
     Dates: start: 20180324, end: 20180327
  36. ONSERAN [Concomitant]
     Indication: ABDOMINAL PAIN UPPER
     Route: 048
     Dates: start: 20171216, end: 20171216
  37. LINEZOLID. [Suspect]
     Active Substance: LINEZOLID
     Indication: TUBERCULOSIS
     Route: 048
     Dates: start: 20171123, end: 20171222
  38. LINEZOLID. [Suspect]
     Active Substance: LINEZOLID
     Indication: TUBERCULOSIS
     Route: 048
     Dates: start: 20180102, end: 20180126
  39. CLOFAZIMINE [Suspect]
     Active Substance: CLOFAZIMINE
     Indication: TUBERCULOSIS
     Route: 048
     Dates: start: 20180119
  40. AMOXICILLIN/CLAVULANIC ACID [Suspect]
     Active Substance: AMOXICILLIN\CLAVULANIC ACID
     Indication: TUBERCULOSIS
     Route: 048
     Dates: start: 20170703, end: 20170717
  41. PROTHIONAMIDE [Suspect]
     Active Substance: PROTIONAMIDE
     Indication: TUBERCULOSIS
     Route: 048
     Dates: start: 20180103
  42. BEARSE [Concomitant]
     Indication: DYSPEPSIA
     Route: 048
     Dates: start: 20171021, end: 20171222
  43. ISOTONIC [Concomitant]
     Indication: ELECTROLYTE SUBSTITUTION THERAPY
     Route: 042
     Dates: start: 20170704, end: 20170715
  44. ISOTONIC [Concomitant]
     Indication: ELECTROLYTE SUBSTITUTION THERAPY
     Route: 042
     Dates: start: 20170814, end: 20170815
  45. ISOTONIC [Concomitant]
     Indication: ABDOMINAL PAIN UPPER
     Route: 042
     Dates: start: 20170814, end: 20170815
  46. SMECTA [Concomitant]
     Active Substance: MONTMORILLONITE
     Indication: DIARRHOEA
     Route: 048
     Dates: start: 20170709, end: 20170712
  47. SMECTA [Concomitant]
     Active Substance: MONTMORILLONITE
     Indication: ANTIDIARRHOEAL SUPPORTIVE CARE
     Route: 048
     Dates: start: 20170915, end: 20170915
  48. SMECTA [Concomitant]
     Active Substance: MONTMORILLONITE
     Indication: ANTIDIARRHOEAL SUPPORTIVE CARE
     Route: 048
     Dates: start: 20171122, end: 20171122
  49. LOPMIN [Concomitant]
     Indication: ANTIDIARRHOEAL SUPPORTIVE CARE
     Route: 048
     Dates: start: 20170927, end: 20170927
  50. LOPMIN [Concomitant]
     Indication: ANTIDIARRHOEAL SUPPORTIVE CARE
     Route: 048
     Dates: start: 20171002, end: 20171002
  51. POTASSIUM CHLORIDE. [Concomitant]
     Active Substance: POTASSIUM CHLORIDE
     Indication: HYPOKALAEMIA
     Route: 042
     Dates: start: 20170714, end: 20170714
  52. DUTASTERIDE. [Concomitant]
     Active Substance: DUTASTERIDE
     Indication: BENIGN PROSTATIC HYPERPLASIA
     Route: 048
     Dates: start: 20170913, end: 20170926
  53. LORAVAN [Concomitant]
     Active Substance: LORAZEPAM
     Indication: INSOMNIA
     Route: 048
     Dates: start: 20170801, end: 20170804
  54. LORAVAN [Concomitant]
     Active Substance: LORAZEPAM
     Indication: INSOMNIA
     Route: 048
     Dates: start: 20170809, end: 20180405
  55. DEXTROSE. [Concomitant]
     Active Substance: DEXTROSE
     Indication: HYPOKALAEMIA
     Route: 042
     Dates: start: 20170711, end: 20170711
  56. GABAPENTIN. [Concomitant]
     Active Substance: GABAPENTIN
     Indication: NEUROPATHY PERIPHERAL
     Route: 048
     Dates: start: 20171213, end: 20171222
  57. TAMUNAL [Concomitant]
     Indication: BENIGN PROSTATIC HYPERPLASIA
     Route: 048
     Dates: start: 20170712, end: 20170717
  58. SODIUM CHLORIDE. [Concomitant]
     Active Substance: SODIUM CHLORIDE
     Indication: ELECTROLYTE SUBSTITUTION THERAPY
     Route: 042
     Dates: start: 20170714, end: 20170714
  59. SODIUM CHLORIDE. [Concomitant]
     Active Substance: SODIUM CHLORIDE
     Indication: ELECTROLYTE SUBSTITUTION THERAPY
     Route: 042
     Dates: start: 20170718, end: 20170718
  60. SODIUM CHLORIDE. [Concomitant]
     Active Substance: SODIUM CHLORIDE
     Indication: ELECTROLYTE SUBSTITUTION THERAPY
     Route: 042
     Dates: start: 20171107, end: 20171107
  61. PERIDOR [Concomitant]
     Indication: DELIRIUM
     Route: 030
     Dates: start: 20170720, end: 20170720
  62. GASTER [Concomitant]
     Active Substance: FAMOTIDINE
     Indication: ABDOMINAL PAIN UPPER
     Route: 048
     Dates: start: 20171020, end: 20171222
  63. METOCLOPRAMIDE HYDROCHLORIDE. [Concomitant]
     Active Substance: METOCLOPRAMIDE HYDROCHLORIDE
     Indication: ABDOMINAL PAIN UPPER
     Route: 042
     Dates: start: 20180502, end: 20180502
  64. METOCLOPRAMIDE HYDROCHLORIDE. [Concomitant]
     Active Substance: METOCLOPRAMIDE HYDROCHLORIDE
     Indication: ABDOMINAL PAIN UPPER
     Route: 042
     Dates: start: 20180503, end: 20180503
  65. GANAMED [Concomitant]
     Indication: ABDOMINAL PAIN UPPER
     Route: 048
     Dates: start: 20171021, end: 20171029
  66. LINEZOLID. [Suspect]
     Active Substance: LINEZOLID
     Indication: TUBERCULOSIS
     Route: 048
     Dates: start: 20170703, end: 20170717
  67. LINEZOLID. [Suspect]
     Active Substance: LINEZOLID
     Indication: TUBERCULOSIS
     Route: 048
     Dates: start: 20170731, end: 20170821
  68. AMIKACIN. [Suspect]
     Active Substance: AMIKACIN
     Indication: TUBERCULOSIS
     Route: 042
     Dates: start: 20170703, end: 20170717
  69. PROTHIONAMIDE [Suspect]
     Active Substance: PROTIONAMIDE
     Indication: TUBERCULOSIS
     Route: 048
     Dates: start: 20170811, end: 20171222
  70. KANAMYCIN [Suspect]
     Active Substance: KANAMYCIN A SULFATE
     Indication: TUBERCULOSIS
     Route: 030
     Dates: start: 20171027, end: 20171211
  71. BEARSE [Concomitant]
     Indication: ABDOMINAL PAIN UPPER
     Route: 048
     Dates: start: 20170704, end: 20170717
  72. BEARSE [Concomitant]
     Indication: DYSPEPSIA
     Route: 048
     Dates: start: 20171020, end: 20171020
  73. BEARSE [Concomitant]
     Indication: DYSPEPSIA
     Route: 048
     Dates: start: 20180323, end: 20180323
  74. ISOTONIC [Concomitant]
     Indication: ABDOMINAL PAIN
     Route: 042
     Dates: start: 20170704, end: 20170715
  75. ISOTONIC [Concomitant]
     Indication: ABDOMINAL PAIN
     Route: 042
     Dates: start: 20171218, end: 20171218
  76. ISOTONIC [Concomitant]
     Indication: ABDOMINAL PAIN UPPER
     Route: 042
     Dates: start: 20171218, end: 20171218
  77. ISOTONIC [Concomitant]
     Indication: ABDOMINAL PAIN
     Route: 042
     Dates: start: 20171218, end: 20171218
  78. SMECTA [Concomitant]
     Active Substance: MONTMORILLONITE
     Indication: ANTIDIARRHOEAL SUPPORTIVE CARE
     Route: 048
     Dates: start: 20170709, end: 20170712
  79. SMECTA [Concomitant]
     Active Substance: MONTMORILLONITE
     Indication: ANTIDIARRHOEAL SUPPORTIVE CARE
     Route: 048
     Dates: start: 20170823, end: 20170823
  80. SMECTA [Concomitant]
     Active Substance: MONTMORILLONITE
     Indication: DIARRHOEA
     Route: 048
     Dates: start: 20170901, end: 20170901
  81. SMECTA [Concomitant]
     Active Substance: MONTMORILLONITE
     Indication: ANTIDIARRHOEAL SUPPORTIVE CARE
     Route: 048
     Dates: start: 20171030, end: 20171101
  82. LOPMIN [Concomitant]
     Indication: ANTIDIARRHOEAL SUPPORTIVE CARE
     Route: 048
     Dates: start: 20171004, end: 20171004
  83. LOPMIN [Concomitant]
     Indication: ANTIDIARRHOEAL SUPPORTIVE CARE
     Route: 048
     Dates: start: 20171107, end: 20171107
  84. POTASSIUM CHLORIDE. [Concomitant]
     Active Substance: POTASSIUM CHLORIDE
     Indication: ELECTROLYTE SUBSTITUTION THERAPY
     Route: 042
     Dates: start: 20170714, end: 20170714
  85. POTASSIUM CHLORIDE. [Concomitant]
     Active Substance: POTASSIUM CHLORIDE
     Indication: HYPOKALAEMIA
     Route: 042
     Dates: start: 20170717, end: 20170717
  86. LORAVAN [Concomitant]
     Active Substance: LORAZEPAM
     Indication: INSOMNIA
     Route: 048
     Dates: start: 20180406
  87. DEXTROSE. [Concomitant]
     Active Substance: DEXTROSE
     Indication: ELECTROLYTE SUBSTITUTION THERAPY
     Route: 042
     Dates: start: 20170711, end: 20170711
  88. DEXTROSE. [Concomitant]
     Active Substance: DEXTROSE
     Indication: HYPOKALAEMIA
     Route: 042
     Dates: start: 20170714, end: 20170714
  89. DEXTROSE. [Concomitant]
     Active Substance: DEXTROSE
     Indication: ELECTROLYTE SUBSTITUTION THERAPY
     Route: 042
     Dates: start: 20171218, end: 20171218
  90. ALLELOCK [Concomitant]
     Active Substance: OLOPATADINE HYDROCHLORIDE
     Indication: RHINORRHOEA
     Route: 048
     Dates: start: 20171118, end: 20171214
  91. SODIUM CHLORIDE. [Concomitant]
     Active Substance: SODIUM CHLORIDE
     Indication: COMPUTERISED TOMOGRAM
     Route: 042
     Dates: start: 20170714, end: 20170714
  92. SODIUM CHLORIDE. [Concomitant]
     Active Substance: SODIUM CHLORIDE
     Indication: COMPUTERISED TOMOGRAM
     Route: 042
     Dates: start: 20170714, end: 20170714
  93. SODIUM CHLORIDE. [Concomitant]
     Active Substance: SODIUM CHLORIDE
     Indication: ELECTROLYTE SUBSTITUTION THERAPY
     Route: 042
     Dates: start: 20170717, end: 20170717
  94. SODIUM CHLORIDE. [Concomitant]
     Active Substance: SODIUM CHLORIDE
     Indication: FLUID REPLACEMENT
     Route: 042
     Dates: start: 20170718, end: 20170718
  95. SODIUM CHLORIDE. [Concomitant]
     Active Substance: SODIUM CHLORIDE
     Indication: FLUID REPLACEMENT
     Route: 042
     Dates: start: 20171218, end: 20171218
  96. SMOODIPIN [Concomitant]
     Indication: DELIRIUM
     Route: 048
     Dates: start: 20170716, end: 20170716
  97. EBASTEL [Concomitant]
     Active Substance: EBASTINE
     Indication: RHINORRHOEA
     Route: 048
     Dates: start: 20171007, end: 20171007
  98. LEVOFLOXACIN. [Concomitant]
     Active Substance: LEVOFLOXACIN
     Indication: BLEPHARITIS
     Route: 050
     Dates: start: 20171116, end: 20180314
  99. TRANSAMIN [Concomitant]
     Active Substance: TRANEXAMIC ACID
     Indication: HAEMOPTYSIS
     Route: 048
     Dates: start: 20171120, end: 20171126
  100. SODIUM HYALURONATE [Concomitant]
     Active Substance: HYALURONATE SODIUM
     Indication: DRY EYE
     Route: 031
     Dates: start: 20171206
  101. GASMOTIN [Concomitant]
     Active Substance: MOSAPRIDE CITRATE
     Indication: ABDOMINAL PAIN UPPER
     Route: 048
     Dates: start: 20171214, end: 20171214
  102. LINEZOLID. [Suspect]
     Active Substance: LINEZOLID
     Indication: TUBERCULOSIS
     Route: 048
     Dates: start: 20171228, end: 20171228
  103. AMOXICILLIN/CLAVULANIC ACID [Suspect]
     Active Substance: AMOXICILLIN\CLAVULANIC ACID
     Indication: TUBERCULOSIS
     Route: 048
     Dates: start: 20170817, end: 20171222
  104. MEROPENEM. [Suspect]
     Active Substance: MEROPENEM
     Indication: TUBERCULOSIS
     Route: 042
     Dates: start: 20170817, end: 20170903
  105. PROTHIONAMIDE [Suspect]
     Active Substance: PROTIONAMIDE
     Indication: TUBERCULOSIS
     Route: 048
     Dates: start: 20180102, end: 20180102
  106. BEARSE [Concomitant]
     Indication: DYSPEPSIA
     Route: 048
     Dates: start: 20180324
  107. BEARSE [Concomitant]
     Indication: ABDOMINAL PAIN UPPER
     Route: 048
     Dates: start: 20180324
  108. ISOTONIC [Concomitant]
     Indication: ELECTROLYTE SUBSTITUTION THERAPY
     Route: 042
     Dates: start: 20170730, end: 20170730
  109. SMECTA [Concomitant]
     Active Substance: MONTMORILLONITE
     Indication: ANTIDIARRHOEAL SUPPORTIVE CARE
     Route: 048
     Dates: start: 20170825, end: 20170826
  110. LOPMIN [Concomitant]
     Indication: ANTIDIARRHOEAL SUPPORTIVE CARE
     Route: 048
     Dates: start: 20170710, end: 20170712
  111. LOPMIN [Concomitant]
     Indication: ANTIDIARRHOEAL SUPPORTIVE CARE
     Route: 048
     Dates: start: 20170714, end: 20170717
  112. LOPMIN [Concomitant]
     Indication: ANTIDIARRHOEAL SUPPORTIVE CARE
     Route: 048
     Dates: start: 20170915, end: 20170916
  113. LOPMIN [Concomitant]
     Indication: ANTIDIARRHOEAL SUPPORTIVE CARE
     Route: 048
     Dates: start: 20171013, end: 20171013
  114. LOPMIN [Concomitant]
     Indication: ANTIDIARRHOEAL SUPPORTIVE CARE
     Route: 048
     Dates: start: 20171020, end: 20171020
  115. LOPMIN [Concomitant]
     Indication: ANTIDIARRHOEAL SUPPORTIVE CARE
     Route: 048
     Dates: start: 20171022, end: 20171023
  116. LOPMIN [Concomitant]
     Indication: ANTIDIARRHOEAL SUPPORTIVE CARE
     Route: 048
     Dates: start: 20171108, end: 20171110
  117. LOPMIN [Concomitant]
     Indication: ANTIDIARRHOEAL SUPPORTIVE CARE
     Route: 048
     Dates: start: 20171111, end: 20171111
  118. POTASSIUM CHLORIDE. [Concomitant]
     Active Substance: POTASSIUM CHLORIDE
     Indication: ELECTROLYTE SUBSTITUTION THERAPY
     Route: 042
     Dates: start: 20170711, end: 20170711
  119. POTASSIUM CHLORIDE. [Concomitant]
     Active Substance: POTASSIUM CHLORIDE
     Indication: HYPOKALAEMIA
     Route: 042
     Dates: start: 20171218, end: 20171218
  120. PROIMER [Concomitant]
     Indication: TREMOR
     Route: 048
     Dates: start: 20160408, end: 20170717
  121. LEVOTUSS [Concomitant]
     Active Substance: LEVODROPROPIZINE
     Indication: PRODUCTIVE COUGH
     Route: 048
     Dates: start: 20170628, end: 20170717
  122. FAMOTIDINE. [Concomitant]
     Active Substance: FAMOTIDINE
     Indication: ABDOMINAL PAIN UPPER
     Route: 048
     Dates: start: 20170727, end: 20170727
  123. LOCERYL [Concomitant]
     Active Substance: AMOROLFINE HYDROCHLORIDE
     Indication: HYPERKERATOSIS
     Route: 061
     Dates: start: 20171111
  124. GLIATILIN [Concomitant]
     Active Substance: CHOLINE ALFOSCERATE
     Route: 048
     Dates: start: 20160603, end: 20170718
  125. TAMUNAL [Concomitant]
     Indication: BENIGN PROSTATIC HYPERPLASIA
     Route: 048
     Dates: start: 20170828, end: 20170909
  126. SODIUM CHLORIDE. [Concomitant]
     Active Substance: SODIUM CHLORIDE
     Indication: COMPUTERISED TOMOGRAM
     Route: 042
     Dates: start: 20171107, end: 20171107
  127. SODIUM CHLORIDE. [Concomitant]
     Active Substance: SODIUM CHLORIDE
     Indication: ELECTROLYTE SUBSTITUTION THERAPY
     Route: 042
     Dates: start: 20171204, end: 20171205
  128. SMOODIPIN [Concomitant]
     Indication: DELIRIUM
     Route: 048
     Dates: start: 20170718, end: 20170718
  129. SMOODIPIN [Concomitant]
     Indication: DELIRIUM
     Route: 048
     Dates: start: 20170720, end: 20170720
  130. SMOODIPIN [Concomitant]
     Indication: DELIRIUM
     Route: 048
     Dates: start: 20170721, end: 20170721
  131. TRAZODONE HYDROCHLORIDE. [Concomitant]
     Active Substance: TRAZODONE HYDROCHLORIDE
     Indication: INSOMNIA
     Route: 048
     Dates: start: 20170731, end: 20170731
  132. METOCLOPRAMIDE HYDROCHLORIDE. [Concomitant]
     Active Substance: METOCLOPRAMIDE HYDROCHLORIDE
     Indication: ABDOMINAL PAIN UPPER
     Route: 042
     Dates: start: 20180325, end: 20180325
  133. ACETYLCYSTEINE. [Concomitant]
     Active Substance: ACETYLCYSTEINE
     Route: 048
     Dates: start: 20171204, end: 20171205
  134. TIROMED [Concomitant]
     Indication: ABDOMINAL PAIN UPPER
     Route: 048
     Dates: start: 20171214, end: 20171214
  135. THEOBROMINE [Concomitant]
     Active Substance: THEOBROMINE
     Indication: PRODUCTIVE COUGH
     Route: 048
     Dates: start: 20170627, end: 20170717
  136. TMC207 [Suspect]
     Active Substance: BEDAQUILINE
     Indication: TUBERCULOSIS
     Route: 048
     Dates: start: 20171110, end: 20171120
  137. TMC207 [Suspect]
     Active Substance: BEDAQUILINE
     Indication: TUBERCULOSIS
     Route: 048
     Dates: start: 20171201, end: 20171222
  138. AMOXICILLIN/CLAVULANIC ACID [Suspect]
     Active Substance: AMOXICILLIN\CLAVULANIC ACID
     Indication: TUBERCULOSIS
     Route: 048
     Dates: start: 20180103, end: 20180103
  139. AMOXICILLIN/CLAVULANIC ACID [Suspect]
     Active Substance: AMOXICILLIN\CLAVULANIC ACID
     Indication: TUBERCULOSIS
     Route: 048
     Dates: start: 20180104
  140. AMIKACIN. [Suspect]
     Active Substance: AMIKACIN
     Indication: TUBERCULOSIS
     Route: 042
     Dates: start: 20170802, end: 20170929
  141. BEARSE [Concomitant]
     Indication: ABDOMINAL PAIN UPPER
     Route: 048
     Dates: start: 20171020, end: 20171020
  142. ISOTONIC [Concomitant]
     Indication: ABDOMINAL PAIN UPPER
     Route: 042
     Dates: start: 20170704, end: 20170715
  143. ISOTONIC [Concomitant]
     Indication: ABDOMINAL PAIN UPPER
     Route: 042
     Dates: start: 20170718, end: 20170719
  144. ISOTONIC [Concomitant]
     Indication: ABDOMINAL PAIN UPPER
     Route: 042
     Dates: start: 20171218, end: 20171218
  145. ISOTONIC [Concomitant]
     Indication: ELECTROLYTE SUBSTITUTION THERAPY
     Route: 042
     Dates: start: 20171218, end: 20171218
  146. ISOTONIC [Concomitant]
     Indication: ELECTROLYTE SUBSTITUTION THERAPY
     Route: 042
     Dates: start: 20171218, end: 20171218
  147. SMECTA [Concomitant]
     Active Substance: MONTMORILLONITE
     Indication: ANTIDIARRHOEAL SUPPORTIVE CARE
     Route: 048
     Dates: start: 20170901, end: 20170901
  148. SMECTA [Concomitant]
     Active Substance: MONTMORILLONITE
     Indication: DIARRHOEA
     Route: 048
     Dates: start: 20170902, end: 20170914
  149. SMECTA [Concomitant]
     Active Substance: MONTMORILLONITE
     Indication: DIARRHOEA
     Route: 048
     Dates: start: 20171030, end: 20171101
  150. SMECTA [Concomitant]
     Active Substance: MONTMORILLONITE
     Indication: ANTIDIARRHOEAL SUPPORTIVE CARE
     Route: 048
     Dates: start: 20171102, end: 20171102
  151. SMECTA [Concomitant]
     Active Substance: MONTMORILLONITE
     Indication: DIARRHOEA
     Route: 048
     Dates: start: 20171123, end: 20171123
  152. LOPMIN [Concomitant]
     Indication: ANTIDIARRHOEAL SUPPORTIVE CARE
     Route: 048
     Dates: start: 20170921, end: 20170922
  153. LOPMIN [Concomitant]
     Indication: ANTIDIARRHOEAL SUPPORTIVE CARE
     Route: 048
     Dates: start: 20171123, end: 20171229
  154. FLUTIFORM [Concomitant]
     Active Substance: FLUTICASONE PROPIONATE\FORMOTEROL FUMARATE
     Indication: CHRONIC OBSTRUCTIVE PULMONARY DISEASE
     Route: 055
     Dates: start: 2014
  155. LORAVAN [Concomitant]
     Active Substance: LORAZEPAM
     Indication: INSOMNIA
     Route: 048
     Dates: start: 20170731, end: 20170731
  156. DEXTROSE. [Concomitant]
     Active Substance: DEXTROSE
     Indication: ELECTROLYTE SUBSTITUTION THERAPY
     Dosage: 10%
     Route: 042
     Dates: start: 20170717, end: 20170717
  157. DEXTROSE. [Concomitant]
     Active Substance: DEXTROSE
     Indication: ELECTROLYTE SUBSTITUTION THERAPY
     Route: 042
     Dates: start: 20170718, end: 20170718
  158. DEXTROSE. [Concomitant]
     Active Substance: DEXTROSE
     Indication: HYPOKALAEMIA
     Route: 042
     Dates: start: 20171218, end: 20171218
  159. FAMOTIDINE. [Concomitant]
     Active Substance: FAMOTIDINE
     Indication: ABDOMINAL PAIN UPPER
     Route: 048
     Dates: start: 20170718, end: 20170719
  160. LAMINA?G [Concomitant]
     Indication: ABDOMINAL PAIN UPPER
     Route: 048
     Dates: start: 20171027, end: 20171123
  161. CONCOR [Concomitant]
     Active Substance: BISOPROLOL FUMARATE
     Indication: ARRHYTHMIA
     Route: 048
     Dates: start: 20170814, end: 20171211
  162. HINECHOL [Concomitant]
     Indication: BENIGN PROSTATIC HYPERPLASIA
     Route: 048
     Dates: start: 20170828, end: 20170828
  163. SODIUM CHLORIDE. [Concomitant]
     Active Substance: SODIUM CHLORIDE
     Indication: FLUID REPLACEMENT
     Route: 042
     Dates: start: 20170714, end: 20170714
  164. SODIUM CHLORIDE. [Concomitant]
     Active Substance: SODIUM CHLORIDE
     Indication: ELECTROLYTE SUBSTITUTION THERAPY
     Route: 042
     Dates: start: 20170718, end: 20170718
  165. SODIUM CHLORIDE. [Concomitant]
     Active Substance: SODIUM CHLORIDE
     Indication: COMPUTERISED TOMOGRAM
     Route: 042
     Dates: start: 20171204, end: 20171205
  166. SMOODIPIN [Concomitant]
     Indication: DELIRIUM
     Route: 048
     Dates: start: 20170725, end: 20170725
  167. PERIDOR [Concomitant]
     Indication: DELIRIUM
     Route: 030
     Dates: start: 20170718, end: 20170718
  168. GLUCOSE [Concomitant]
     Active Substance: DEXTROSE
     Indication: NUTRITIONAL SUPPLEMENTATION
     Route: 042
     Dates: start: 20170718, end: 20170718
  169. TRAZODONE HYDROCHLORIDE. [Concomitant]
     Active Substance: TRAZODONE HYDROCHLORIDE
     Indication: INSOMNIA
     Route: 048
     Dates: start: 20170805, end: 20170805
  170. TRAZODONE HYDROCHLORIDE. [Concomitant]
     Active Substance: TRAZODONE HYDROCHLORIDE
     Indication: INSOMNIA
     Route: 048
     Dates: start: 20170807, end: 20170807
  171. DAXAS [Concomitant]
     Active Substance: ROFLUMILAST
     Indication: CHRONIC OBSTRUCTIVE PULMONARY DISEASE
     Route: 048
     Dates: start: 20171213, end: 20171222
  172. TMC207 [Suspect]
     Active Substance: BEDAQUILINE
     Indication: TUBERCULOSIS
     Route: 048
     Dates: start: 20171030, end: 20171101
  173. AMOXICILLIN/CLAVULANIC ACID [Suspect]
     Active Substance: AMOXICILLIN\CLAVULANIC ACID
     Indication: TUBERCULOSIS
     Route: 048
     Dates: start: 20171228, end: 20171228
  174. IMIPENEM [Suspect]
     Active Substance: IMIPENEM
     Indication: TUBERCULOSIS
     Route: 042
     Dates: start: 20170927, end: 20171222
  175. LANSTON [Concomitant]
     Active Substance: LANSOPRAZOLE
     Indication: ABDOMINAL PAIN UPPER
     Route: 048
     Dates: start: 20170824, end: 20171020
  176. BEARSE [Concomitant]
     Indication: DYSPEPSIA
     Route: 048
     Dates: start: 20170704, end: 20170717
  177. BEARSE [Concomitant]
     Indication: DYSPEPSIA
     Route: 048
     Dates: start: 20180101, end: 20180101
  178. BEARSE [Concomitant]
     Indication: ABDOMINAL PAIN UPPER
     Route: 048
     Dates: start: 20180101, end: 20180101
  179. ISOTONIC [Concomitant]
     Indication: ABDOMINAL PAIN
     Route: 042
     Dates: start: 20171218, end: 20171218
  180. SMECTA [Concomitant]
     Active Substance: MONTMORILLONITE
     Indication: ANTIDIARRHOEAL SUPPORTIVE CARE
     Route: 048
     Dates: start: 20170827, end: 20170830
  181. SMECTA [Concomitant]
     Active Substance: MONTMORILLONITE
     Indication: DIARRHOEA
     Route: 048
     Dates: start: 20171102, end: 20171102
  182. SMECTA [Concomitant]
     Active Substance: MONTMORILLONITE
     Indication: DIARRHOEA
     Route: 048
     Dates: start: 20171122, end: 20171122
  183. SMECTA [Concomitant]
     Active Substance: MONTMORILLONITE
     Indication: ANTIDIARRHOEAL SUPPORTIVE CARE
     Route: 048
     Dates: start: 20171123, end: 20171123
  184. LOPMIN [Concomitant]
     Indication: ANTIDIARRHOEAL SUPPORTIVE CARE
     Route: 048
     Dates: start: 20170929, end: 20170929
  185. LOPMIN [Concomitant]
     Indication: ANTIDIARRHOEAL SUPPORTIVE CARE
     Route: 048
     Dates: start: 20171011, end: 20171011
  186. POTASSIUM CHLORIDE. [Concomitant]
     Active Substance: POTASSIUM CHLORIDE
     Indication: HYPOKALAEMIA
     Route: 042
     Dates: start: 20170710, end: 20170710
  187. POTASSIUM CHLORIDE. [Concomitant]
     Active Substance: POTASSIUM CHLORIDE
     Indication: ELECTROLYTE SUBSTITUTION THERAPY
     Route: 042
     Dates: start: 20170710, end: 20170710
  188. DUTASTERIDE. [Concomitant]
     Active Substance: DUTASTERIDE
     Indication: BENIGN PROSTATIC HYPERPLASIA
     Route: 048
     Dates: start: 20180518, end: 20180601
  189. LORAVAN [Concomitant]
     Active Substance: LORAZEPAM
     Indication: INSOMNIA
     Route: 048
     Dates: start: 20170807, end: 20170807
  190. DUPHALAC [Concomitant]
     Active Substance: LACTULOSE
     Indication: CONSTIPATION
     Route: 048
     Dates: start: 20170719, end: 20170719
  191. DEXTROSE. [Concomitant]
     Active Substance: DEXTROSE
     Indication: HYPOKALAEMIA
     Route: 042
     Dates: start: 20170711, end: 20170711
  192. DEXTROSE. [Concomitant]
     Active Substance: DEXTROSE
     Indication: ELECTROLYTE SUBSTITUTION THERAPY
     Route: 042
     Dates: start: 20170711, end: 20170711
  193. DEXTROSE. [Concomitant]
     Active Substance: DEXTROSE
     Indication: ELECTROLYTE SUBSTITUTION THERAPY
     Route: 042
     Dates: start: 20170714, end: 20170714
  194. DEXTROSE. [Concomitant]
     Active Substance: DEXTROSE
     Indication: HYPOKALAEMIA
     Route: 042
     Dates: start: 20170718, end: 20170718
  195. FAMOTIDINE. [Concomitant]
     Active Substance: FAMOTIDINE
     Indication: ABDOMINAL PAIN UPPER
     Route: 048
     Dates: start: 20170720, end: 20170720
  196. FAMOTIDINE. [Concomitant]
     Active Substance: FAMOTIDINE
     Indication: ABDOMINAL PAIN UPPER
     Route: 048
     Dates: start: 20170730, end: 20170730
  197. ZENOL COOL [Concomitant]
     Active Substance: METHYL SALICYLATE
     Indication: FLANK PAIN
     Route: 050
     Dates: start: 20170829, end: 20170829
  198. GABAPENTIN. [Concomitant]
     Active Substance: GABAPENTIN
     Indication: NEUROPATHY PERIPHERAL
     Route: 048
     Dates: start: 20171030, end: 20171030
  199. BETHANECHOL CHLORIDE. [Concomitant]
     Active Substance: BETHANECHOL CHLORIDE
     Indication: BENIGN PROSTATIC HYPERPLASIA
     Route: 048
     Dates: start: 20161229, end: 20170711
  200. SODIUM CHLORIDE. [Concomitant]
     Active Substance: SODIUM CHLORIDE
     Indication: FLUID REPLACEMENT
     Route: 042
     Dates: start: 20170714, end: 20170714
  201. SODIUM CHLORIDE. [Concomitant]
     Active Substance: SODIUM CHLORIDE
     Indication: FLUID REPLACEMENT
     Route: 042
     Dates: start: 20171107, end: 20171107
  202. SODIUM CHLORIDE. [Concomitant]
     Active Substance: SODIUM CHLORIDE
     Indication: COMPUTERISED TOMOGRAM
     Route: 042
     Dates: start: 20171218, end: 20171218
  203. SMOODIPIN [Concomitant]
     Indication: DELIRIUM
     Route: 048
     Dates: start: 20170715, end: 20170715
  204. SMOODIPIN [Concomitant]
     Indication: DELIRIUM
     Route: 048
     Dates: start: 20170719, end: 20170719
  205. PERIDOR [Concomitant]
     Indication: DELIRIUM
     Route: 030
     Dates: start: 20170717, end: 20170717
  206. TRAZODONE HYDROCHLORIDE. [Concomitant]
     Active Substance: TRAZODONE HYDROCHLORIDE
     Indication: INSOMNIA
     Route: 048
     Dates: start: 20170728, end: 20170728
  207. TRAZODONE HYDROCHLORIDE. [Concomitant]
     Active Substance: TRAZODONE HYDROCHLORIDE
     Indication: INSOMNIA
     Route: 048
     Dates: start: 20170801, end: 20170804
  208. METOCLOPRAMIDE HYDROCHLORIDE. [Concomitant]
     Active Substance: METOCLOPRAMIDE HYDROCHLORIDE
     Indication: ABDOMINAL PAIN UPPER
     Route: 042
     Dates: start: 20180425, end: 20180425
  209. EBASTEL [Concomitant]
     Active Substance: EBASTINE
     Indication: RHINORRHOEA
     Route: 048
     Dates: start: 20170929, end: 20171005
  210. GANAMED [Concomitant]
     Indication: ABDOMINAL PAIN UPPER
     Route: 048
     Dates: start: 20171207, end: 20171208
  211. DAXAS [Concomitant]
     Active Substance: ROFLUMILAST
     Indication: CHRONIC OBSTRUCTIVE PULMONARY DISEASE
     Route: 048
     Dates: start: 20180214, end: 20180218
  212. MEROPENEM. [Suspect]
     Active Substance: MEROPENEM
     Indication: TUBERCULOSIS
     Route: 042
     Dates: start: 20170703, end: 20170718
  213. MEROPENEM. [Suspect]
     Active Substance: MEROPENEM
     Indication: TUBERCULOSIS
     Route: 042
     Dates: start: 20170904, end: 20170927
  214. LANSTON [Concomitant]
     Active Substance: LANSOPRAZOLE
     Indication: ABDOMINAL PAIN UPPER
     Route: 048
     Dates: start: 20171224, end: 20180106
  215. BEARSE [Concomitant]
     Indication: ABDOMINAL PAIN UPPER
     Route: 048
     Dates: start: 20171021, end: 20171222
  216. ISOTONIC [Concomitant]
     Indication: ABDOMINAL PAIN
     Route: 042
     Dates: start: 20170718, end: 20170719
  217. SMECTA [Concomitant]
     Active Substance: MONTMORILLONITE
     Indication: DIARRHOEA
     Route: 048
     Dates: start: 20170825, end: 20170826
  218. SMECTA [Concomitant]
     Active Substance: MONTMORILLONITE
     Indication: ANTIDIARRHOEAL SUPPORTIVE CARE
     Route: 048
     Dates: start: 20170902, end: 20170914
  219. SMECTA [Concomitant]
     Active Substance: MONTMORILLONITE
     Indication: DIARRHOEA
     Route: 048
     Dates: start: 20170915, end: 20170915
  220. SMECTA [Concomitant]
     Active Substance: MONTMORILLONITE
     Indication: ANTIDIARRHOEAL SUPPORTIVE CARE
     Route: 048
     Dates: start: 20171028, end: 20171028
  221. LOPMIN [Concomitant]
     Indication: ANTIDIARRHOEAL SUPPORTIVE CARE
     Route: 048
     Dates: start: 20171007, end: 20171007
  222. POTASSIUM CHLORIDE. [Concomitant]
     Active Substance: POTASSIUM CHLORIDE
     Indication: HYPOKALAEMIA
     Route: 042
     Dates: start: 20170711, end: 20170711
  223. POTASSIUM CHLORIDE. [Concomitant]
     Active Substance: POTASSIUM CHLORIDE
     Indication: ELECTROLYTE SUBSTITUTION THERAPY
     Route: 042
     Dates: start: 20171218, end: 20171218
  224. DUTASTERIDE. [Concomitant]
     Active Substance: DUTASTERIDE
     Indication: BENIGN PROSTATIC HYPERPLASIA
     Route: 048
     Dates: start: 20161229, end: 20170717
  225. DUTASTERIDE. [Concomitant]
     Active Substance: DUTASTERIDE
     Indication: BENIGN PROSTATIC HYPERPLASIA
     Route: 048
     Dates: start: 20170828, end: 20170912
  226. RIVOTRIL [Concomitant]
     Active Substance: CLONAZEPAM
     Indication: TREMOR
     Route: 048
     Dates: start: 20141229, end: 20170717
  227. LORAVAN [Concomitant]
     Active Substance: LORAZEPAM
     Indication: INSOMNIA
     Route: 048
     Dates: start: 20170728, end: 20170728
  228. DUPHALAC [Concomitant]
     Active Substance: LACTULOSE
     Indication: CONSTIPATION
     Route: 048
     Dates: start: 20170724, end: 20170724
  229. FAMOTIDINE. [Concomitant]
     Active Substance: FAMOTIDINE
     Indication: ABDOMINAL PAIN UPPER
     Route: 048
     Dates: start: 20170807, end: 20170807
  230. FAMOTIDINE. [Concomitant]
     Active Substance: FAMOTIDINE
     Indication: ABDOMINAL PAIN UPPER
     Route: 048
     Dates: start: 20170811, end: 20170823
  231. GODEX [Concomitant]
     Indication: LIVER DISORDER
     Route: 048
     Dates: start: 20170925, end: 20171004
  232. ZOLPID [Concomitant]
     Indication: INSOMNIA
     Route: 048
     Dates: start: 20171024
  233. VASELINE PURE [Concomitant]
     Active Substance: PETROLATUM
     Indication: THERAPEUTIC SKIN CARE TOPICAL
     Route: 061
     Dates: start: 20171021
  234. SODIUM CHLORIDE. [Concomitant]
     Active Substance: SODIUM CHLORIDE
     Indication: ELECTROLYTE SUBSTITUTION THERAPY
     Route: 042
     Dates: start: 20171218, end: 20171218
  235. TRAZODONE HYDROCHLORIDE. [Concomitant]
     Active Substance: TRAZODONE HYDROCHLORIDE
     Indication: INSOMNIA
     Route: 048
     Dates: start: 20171024, end: 20171026
  236. GASTER [Concomitant]
     Active Substance: FAMOTIDINE
     Indication: ABDOMINAL PAIN UPPER
     Route: 048
     Dates: start: 20170808, end: 20170810
  237. GASTER [Concomitant]
     Active Substance: FAMOTIDINE
     Indication: ABDOMINAL PAIN UPPER
     Route: 048
     Dates: start: 20171214, end: 20171214
  238. METOCLOPRAMIDE HYDROCHLORIDE. [Concomitant]
     Active Substance: METOCLOPRAMIDE HYDROCHLORIDE
     Indication: ABDOMINAL PAIN UPPER
     Route: 042
     Dates: start: 20180427, end: 20180427
  239. GANAMED [Concomitant]
     Indication: ABDOMINAL PAIN UPPER
     Route: 048
     Dates: start: 20171020, end: 20171029
  240. DAXAS [Concomitant]
     Active Substance: ROFLUMILAST
     Indication: CHRONIC OBSTRUCTIVE PULMONARY DISEASE
     Route: 048
     Dates: start: 20180319
  241. TMC207 [Suspect]
     Active Substance: BEDAQUILINE
     Indication: TUBERCULOSIS
     Route: 048
     Dates: start: 20170804, end: 20171020
  242. CYCLOSERINE. [Suspect]
     Active Substance: CYCLOSERINE
     Indication: TUBERCULOSIS
     Route: 048
     Dates: start: 20170703, end: 20170717
  243. CLOFAZIMINE [Suspect]
     Active Substance: CLOFAZIMINE
     Indication: TUBERCULOSIS
     Route: 048
     Dates: start: 20171111, end: 20171123
  244. AMIKACIN. [Suspect]
     Active Substance: AMIKACIN
     Indication: TUBERCULOSIS
     Route: 042
     Dates: start: 20170930, end: 20171026
  245. PROTHIONAMIDE [Suspect]
     Active Substance: PROTIONAMIDE
     Indication: TUBERCULOSIS
     Route: 048
     Dates: start: 20171228, end: 20171228
  246. SMOODIPIN [Concomitant]
     Indication: DELIRIUM
     Route: 048
     Dates: start: 20170719, end: 20170723
  247. LANSTON [Concomitant]
     Active Substance: LANSOPRAZOLE
     Indication: ABDOMINAL PAIN UPPER
     Route: 048
     Dates: start: 20170703, end: 20170717
  248. BEARSE [Concomitant]
     Indication: ABDOMINAL PAIN UPPER
     Route: 048
     Dates: start: 20180323, end: 20180323
  249. ISOTONIC [Concomitant]
     Indication: ABDOMINAL PAIN
     Route: 042
     Dates: start: 20170727, end: 20170727
  250. ISOTONIC [Concomitant]
     Indication: ELECTROLYTE SUBSTITUTION THERAPY
     Route: 042
     Dates: start: 20171218, end: 20171218
  251. ISOTONIC [Concomitant]
     Indication: ABDOMINAL PAIN UPPER
     Route: 042
     Dates: start: 20171218, end: 20171218
  252. SMECTA [Concomitant]
     Active Substance: MONTMORILLONITE
     Indication: DIARRHOEA
     Route: 048
     Dates: start: 20170822, end: 20170822
  253. SMECTA [Concomitant]
     Active Substance: MONTMORILLONITE
     Indication: ANTIDIARRHOEAL SUPPORTIVE CARE
     Route: 048
     Dates: start: 20170822, end: 20170822
  254. SMECTA [Concomitant]
     Active Substance: MONTMORILLONITE
     Indication: DIARRHOEA
     Route: 048
     Dates: start: 20170823, end: 20170823
  255. SMECTA [Concomitant]
     Active Substance: MONTMORILLONITE
     Indication: DIARRHOEA
     Route: 048
     Dates: start: 20171029, end: 20171029
  256. SMECTA [Concomitant]
     Active Substance: MONTMORILLONITE
     Indication: ANTIDIARRHOEAL SUPPORTIVE CARE
     Route: 048
     Dates: start: 20171029, end: 20171029
  257. LOPMIN [Concomitant]
     Indication: ANTIDIARRHOEAL SUPPORTIVE CARE
     Route: 048
     Dates: start: 20170917, end: 20170919
  258. SPIRIVA [Concomitant]
     Active Substance: TIOTROPIUM BROMIDE MONOHYDRATE
     Indication: CHRONIC OBSTRUCTIVE PULMONARY DISEASE
     Route: 055
     Dates: start: 2014
  259. LORAVAN [Concomitant]
     Active Substance: LORAZEPAM
     Indication: INSOMNIA
     Route: 048
     Dates: start: 20170805, end: 20170805
  260. DEPAS (ETIZOLAM) [Concomitant]
     Active Substance: ETIZOLAM
     Indication: INSOMNIA
     Route: 048
     Dates: start: 20170726, end: 20170726
  261. GABAPENTIN. [Concomitant]
     Active Substance: GABAPENTIN
     Indication: NEUROPATHY PERIPHERAL
     Route: 048
     Dates: start: 20171031, end: 20171212
  262. TAMSULOSIN HYDROCHLORIDE. [Concomitant]
     Active Substance: TAMSULOSIN HYDROCHLORIDE
     Indication: BENIGN PROSTATIC HYPERPLASIA
     Route: 048
     Dates: start: 20170515, end: 20170711
  263. HINECHOL [Concomitant]
     Indication: BENIGN PROSTATIC HYPERPLASIA
     Route: 048
     Dates: start: 20170712, end: 20170717
  264. TAMUNAL [Concomitant]
     Indication: BENIGN PROSTATIC HYPERPLASIA
     Route: 048
     Dates: start: 20170922, end: 20171221
  265. SODIUM CHLORIDE. [Concomitant]
     Active Substance: SODIUM CHLORIDE
     Indication: ELECTROLYTE SUBSTITUTION THERAPY
     Route: 042
     Dates: start: 20170714, end: 20170714
  266. SODIUM CHLORIDE. [Concomitant]
     Active Substance: SODIUM CHLORIDE
     Indication: COMPUTERISED TOMOGRAM
     Route: 042
     Dates: start: 20170718, end: 20170718
  267. TRAZODONE HYDROCHLORIDE. [Concomitant]
     Active Substance: TRAZODONE HYDROCHLORIDE
     Indication: INSOMNIA
     Route: 048
     Dates: start: 20170809, end: 20171023
  268. METOCLOPRAMIDE HYDROCHLORIDE. [Concomitant]
     Active Substance: METOCLOPRAMIDE HYDROCHLORIDE
     Indication: ABDOMINAL PAIN UPPER
     Route: 042
     Dates: start: 20170814, end: 20170815
  269. METOCLOPRAMIDE HYDROCHLORIDE. [Concomitant]
     Active Substance: METOCLOPRAMIDE HYDROCHLORIDE
     Indication: ABDOMINAL PAIN UPPER
     Route: 042
     Dates: start: 20171215, end: 20171215
  270. EBASTEL [Concomitant]
     Active Substance: EBASTINE
     Indication: RHINORRHOEA
     Route: 048
     Dates: start: 20170926, end: 20170927
  271. TRAST [Concomitant]
     Indication: FLANK PAIN
     Route: 050
     Dates: start: 20170926, end: 20170930
  272. GANAMED [Concomitant]
     Indication: ABDOMINAL PAIN UPPER
     Route: 048
     Dates: start: 20171010, end: 20171019
  273. MEDILAC DS [Concomitant]
     Indication: DIARRHOEA
     Route: 048
     Dates: start: 20171028, end: 20171028
  274. DIFLUCORTOLONE VALERATE [Concomitant]
     Active Substance: DIFLUCORTOLONE VALERATE
     Indication: HYPERKERATOSIS
     Route: 061
     Dates: start: 20171111
  275. MYOTONINE [Concomitant]
     Indication: BENIGN PROSTATIC HYPERPLASIA
     Route: 065
     Dates: start: 20161229, end: 20170711

REACTIONS (29)
  - Diarrhoea [Unknown]
  - Vestibular disorder [Not Recovered/Not Resolved]
  - Anal incontinence [Recovered/Resolved]
  - Haemoptysis [Recovered/Resolved]
  - Aspartate aminotransferase increased [Recovered/Resolved]
  - Electrocardiogram QT prolonged [Not Recovered/Not Resolved]
  - Orthostatic hypotension [Not Recovered/Not Resolved]
  - Gingival pain [Recovered/Resolved]
  - Flank pain [Recovered/Resolved]
  - Dizziness [Recovered/Resolved]
  - Depression [Not Recovered/Not Resolved]
  - Hypokalaemia [Recovered/Resolved]
  - Abdominal pain upper [Recovered/Resolved]
  - Hyperkalaemia [Recovered/Resolved]
  - Blepharitis [Recovered/Resolved]
  - Hyperkeratosis [Not Recovered/Not Resolved]
  - Arrhythmia [Recovered/Resolved]
  - Thrombocytopenia [Recovered/Resolved]
  - Hyperkeratosis [Not Recovered/Not Resolved]
  - Delirium [Recovered/Resolved]
  - Headache [Recovered/Resolved]
  - Anaemia [Not Recovered/Not Resolved]
  - Hypoalbuminaemia [Recovered/Resolved]
  - Deafness [Not Recovered/Not Resolved]
  - Vomiting [Recovered/Resolved]
  - Insomnia [Not Recovered/Not Resolved]
  - Alanine aminotransferase increased [Recovered/Resolved]
  - Rhinorrhoea [Recovered/Resolved]
  - Back pain [Recovered/Resolved]

NARRATIVE: CASE EVENT DATE: 20170709
